FAERS Safety Report 6185668-4 (Version None)
Quarter: 2009Q2

REPORT INFORMATION
  Report Type: 
  Country: None (occurrence: None)
  Receive Date: 20090511
  Receipt Date: 20090430
  Transmission Date: 20091009
  Serious: Yes (Hospitalization)
  Sender: FDA-Public Use
  Company Number: PHHO2009US05591

PATIENT
  Sex: Male
  Weight: 77.4 kg

DRUGS (2)
  1. PTK 787A T35913+ [Suspect]
     Indication: SYNOVIAL SARCOMA
     Dosage: 250 MG TWICE DAILY
     Route: 048
     Dates: start: 20081113, end: 20090319
  2. RAD001C [Suspect]
     Indication: SYNOVIAL SARCOMA
     Dosage: 10 MG
     Route: 048
     Dates: start: 20081113, end: 20090331

REACTIONS (3)
  - CHEST TUBE INSERTION [None]
  - PLEURODESIS [None]
  - PNEUMOTHORAX [None]
